FAERS Safety Report 10472646 (Version 2)
Quarter: 2014Q3

REPORT INFORMATION
  Report Type: Report from Study
  Country: None (occurrence: ES)
  Receive Date: 20140924
  Receipt Date: 20140924
  Transmission Date: 20150326
  Serious: Yes (Life-Threatening, Hospitalization, Disabling)
  Sender: FDA-Public Use
  Company Number: ES-CELGENE-144-50794-13111321

PATIENT
  Age: 84 Year
  Sex: Female
  Weight: 62.1 kg

DRUGS (3)
  1. NEUPOGEN [Concomitant]
     Active Substance: FILGRASTIM
     Indication: NEUTROPENIA
     Dosage: 1 GRAM
     Route: 055
  2. VIDAZA [Suspect]
     Active Substance: AZACITIDINE
     Indication: MYELODYSPLASTIC SYNDROME
     Dosage: 119.26 MILLIGRAM
     Route: 058
     Dates: start: 20130829, end: 20130906
  3. LMWH [Concomitant]
     Indication: ANTICOAGULANT THERAPY
     Dosage: 40 MILLIGRAM
     Route: 041

REACTIONS (6)
  - Respiratory tract infection [Recovered/Resolved with Sequelae]
  - Intertrigo candida [Recovered/Resolved]
  - Pneumonia [Fatal]
  - Deep vein thrombosis [Recovered/Resolved]
  - Atrial fibrillation [Recovered/Resolved with Sequelae]
  - Cardiac failure [Recovered/Resolved with Sequelae]

NARRATIVE: CASE EVENT DATE: 20130917
